FAERS Safety Report 19973483 (Version 1)
Quarter: 2021Q4

REPORT INFORMATION
  Report Type: Spontaneous
  Country: US (occurrence: US)
  Receive Date: 20211019
  Receipt Date: 20211019
  Transmission Date: 20220303
  Serious: Yes (Hospitalization)
  Sender: FDA-Public Use
  Company Number: None

PATIENT
  Age: 72 Year
  Sex: Male

DRUGS (2)
  1. CASIRIVIMAB [Suspect]
     Active Substance: CASIRIVIMAB
     Dates: start: 20211015, end: 20211015
  2. IMDEVIMAB [Suspect]
     Active Substance: IMDEVIMAB
     Dates: start: 20211015, end: 20211015

REACTIONS (6)
  - Illness [None]
  - Gait inability [None]
  - Confusional state [None]
  - Pyrexia [None]
  - Dysuria [None]
  - Hypertension [None]

NARRATIVE: CASE EVENT DATE: 20211015
